FAERS Safety Report 16935978 (Version 1)
Quarter: 2019Q4

REPORT INFORMATION
  Report Type: Spontaneous
  Country: JP (occurrence: JP)
  Receive Date: 20191018
  Receipt Date: 20191018
  Transmission Date: 20200122
  Serious: Yes (Hospitalization, Other)
  Sender: FDA-Public Use
  Company Number: JP-SHIRE-JP201935030

PATIENT

DRUGS (2)
  1. INTUNIV [Suspect]
     Active Substance: GUANFACINE HYDROCHLORIDE
     Indication: ATTENTION DEFICIT/HYPERACTIVITY DISORDER
     Dosage: UNK
     Route: 048
     Dates: start: 2018
  2. INTUNIV [Suspect]
     Active Substance: GUANFACINE HYDROCHLORIDE
     Dosage: 3 MILLIGRAM
     Route: 048
     Dates: start: 201904, end: 20190929

REACTIONS (6)
  - Electrocardiogram QT prolonged [Unknown]
  - Blood pressure decreased [Unknown]
  - Headache [Unknown]
  - Heart rate decreased [Unknown]
  - Hypertension [Unknown]
  - Dehydration [Unknown]

NARRATIVE: CASE EVENT DATE: 20190929
